FAERS Safety Report 25680555 (Version 4)
Quarter: 2025Q3

REPORT INFORMATION
  Report Type: Spontaneous
  Country: US (occurrence: US)
  Receive Date: 20250814
  Receipt Date: 20250904
  Transmission Date: 20251020
  Serious: Yes (Other)
  Sender: ASTELLAS
  Company Number: US-ASTELLAS-2025-AER-044273

PATIENT
  Sex: Male

DRUGS (4)
  1. PADCEV [Suspect]
     Active Substance: ENFORTUMAB VEDOTIN-EJFV
     Indication: Metastatic carcinoma of the bladder
     Route: 065
  2. PADCEV [Suspect]
     Active Substance: ENFORTUMAB VEDOTIN-EJFV
     Route: 065
  3. KEYTRUDA [Suspect]
     Active Substance: PEMBROLIZUMAB
     Indication: Metastatic carcinoma of the bladder
     Route: 065
  4. KEYTRUDA [Suspect]
     Active Substance: PEMBROLIZUMAB
     Route: 065

REACTIONS (23)
  - Haemoglobin decreased [Unknown]
  - Malignant neoplasm progression [Unknown]
  - Tumour haemorrhage [Not Recovered/Not Resolved]
  - Rash [Unknown]
  - Skin sensitisation [Unknown]
  - Peripheral swelling [Unknown]
  - Gait disturbance [Unknown]
  - Alopecia [Unknown]
  - Fatigue [Unknown]
  - Haematuria [Not Recovered/Not Resolved]
  - Red blood cell count decreased [Unknown]
  - Asthenia [Not Recovered/Not Resolved]
  - Insomnia [Not Recovered/Not Resolved]
  - Pollakiuria [Not Recovered/Not Resolved]
  - Muscle atrophy [Unknown]
  - Somnolence [Unknown]
  - Skin exfoliation [Recovered/Resolved]
  - Hepatic mass [Unknown]
  - Condition aggravated [Unknown]
  - Incontinence [Unknown]
  - Hypophagia [Unknown]
  - Pulmonary mass [Unknown]
  - Condition aggravated [Unknown]
